FAERS Safety Report 9364099 (Version 1)
Quarter: 2013Q2

REPORT INFORMATION
  Report Type: Spontaneous
  Country: US (occurrence: US)
  Receive Date: 20130624
  Receipt Date: 20130624
  Transmission Date: 20140414
  Serious: No
  Sender: FDA-Public Use
  Company Number: US-009507513-1306USA007888

PATIENT
  Age: 63 Year
  Sex: Female

DRUGS (5)
  1. JANUVIA [Suspect]
     Indication: DIABETES MELLITUS
     Dosage: 100 MG, QD
     Route: 048
     Dates: start: 201211
  2. GLIPIZIDE XL [Concomitant]
  3. LISINOPRIL [Concomitant]
  4. ATORVASTATIN [Concomitant]
  5. MELOXICAM [Concomitant]

REACTIONS (2)
  - Medication residue present [Unknown]
  - Product quality issue [Unknown]
